FAERS Safety Report 5259790-0 (Version None)
Quarter: 2007Q1

REPORT INFORMATION
  Report Type: 
  Country: None (occurrence: None)
  Receive Date: 20070307
  Receipt Date: 20070130
  Transmission Date: 20070707
  Serious: Yes (Hospitalization)
  Sender: FDA-Public Use
  Company Number: 07-010

PATIENT
  Sex: Female

DRUGS (10)
  1. IBUPROFEN [Suspect]
     Indication: FOOT FRACTURE
     Dosage: 800 MG (3-4) DAYS
     Dates: start: 20061207, end: 20061211
  2. ACTOS [Concomitant]
  3. RISPERADOL 2MG [Concomitant]
  4. LIPITOR [Concomitant]
  5. FEMHRT 1MG [Concomitant]
  6. SINGULAIR [Concomitant]
  7. ZOLOFT [Concomitant]
  8. ADVAIR INH [Concomitant]
  9. ENALOPRIL 5MG [Concomitant]
  10. ALBUTEROL [Concomitant]

REACTIONS (3)
  - ANAPHYLACTIC REACTION [None]
  - ASTHENIA [None]
  - SPEECH DISORDER [None]
